FAERS Safety Report 4974261-4 (Version None)
Quarter: 2006Q2

REPORT INFORMATION
  Report Type: 
  Country: None (occurrence: None)
  Receive Date: 20060417
  Receipt Date: 20050926
  Transmission Date: 20061013
  Serious: Yes (Hospitalization, Other)
  Sender: FDA-Public Use
  Company Number: US-MERCK-0509USA03987

PATIENT
  Age: 58 Year
  Sex: Female
  Weight: 73 kg

DRUGS (5)
  1. VIOXX [Suspect]
     Indication: ARTHRITIS
     Route: 048
     Dates: start: 20010101
  2. VIOXX [Suspect]
     Route: 048
     Dates: start: 20030221, end: 20030101
  3. VIOXX [Suspect]
     Route: 048
     Dates: end: 20030201
  4. VIOXX [Suspect]
     Route: 048
     Dates: start: 20021201, end: 20021201
  5. TYLENOL (CAPLET) [Concomitant]
     Route: 065

REACTIONS (7)
  - ACUTE MYOCARDIAL INFARCTION [None]
  - ARTHROPATHY [None]
  - CORONARY ARTERY DISEASE [None]
  - DERMATITIS ALLERGIC [None]
  - GASTROOESOPHAGEAL REFLUX DISEASE [None]
  - HYPERLIPIDAEMIA [None]
  - PERICARDITIS [None]
